FAERS Safety Report 4691733-0 (Version None)
Quarter: 2005Q2

REPORT INFORMATION
  Report Type: 
  Country: None (occurrence: None)
  Receive Date: 20050616
  Receipt Date: 20050524
  Transmission Date: 20051028
  Serious: Yes (Hospitalization, Other)
  Sender: FDA-Public Use
  Company Number: US-BRISTOL-MYERS SQUIBB COMPANY-12981346

PATIENT
  Age: 57 Year
  Sex: Male

DRUGS (12)
  1. CETUXIMAB [Suspect]
     Indication: NON-SMALL CELL LUNG CANCER STAGE IIIB
     Route: 042
     Dates: start: 20050510
  2. PACLITAXEL [Suspect]
     Indication: NON-SMALL CELL LUNG CANCER STAGE IIIB
     Route: 042
     Dates: start: 20050517
  3. CARBOPLATIN [Suspect]
     Indication: NON-SMALL CELL LUNG CANCER STAGE IIIB
     Route: 042
     Dates: start: 20050517
  4. DIOVAN HCT [Concomitant]
     Dates: start: 20040827
  5. CRESTOR [Concomitant]
     Dates: start: 20040827
  6. INDERAL [Concomitant]
     Dates: start: 20040827
  7. ASPIRIN [Concomitant]
     Dates: start: 20040827
  8. NEXIUM [Concomitant]
  9. PROPYL-THYRACIL [Concomitant]
     Dates: start: 20040801
  10. PREDNISONE TAB [Concomitant]
     Dates: start: 19970501
  11. MAGNESIUM [Concomitant]
  12. PERCOCET [Concomitant]
     Indication: PAIN

REACTIONS (2)
  - ARTHRALGIA [None]
  - FEBRILE NEUTROPENIA [None]
